FAERS Safety Report 21309089 (Version 2)
Quarter: 2022Q3

REPORT INFORMATION
  Report Type: Report from Study
  Country: CN (occurrence: CN)
  Receive Date: 20220908
  Receipt Date: 20220926
  Transmission Date: 20221027
  Serious: Yes (Hospitalization)
  Sender: FDA-Public Use
  Company Number: CN-GLAXOSMITHKLINE-CN2022GSK074112

PATIENT

DRUGS (34)
  1. BELANTAMAB MAFODOTIN [Suspect]
     Active Substance: BELANTAMAB MAFODOTIN
     Indication: Plasma cell myeloma
     Dosage: 2.5 MG/KG ON DAY 1 OF EVERY 21 DAY CYCLE
     Route: 042
     Dates: start: 20220429, end: 20220722
  2. DEXTROSE [Concomitant]
     Active Substance: DEXTROSE
     Indication: Fluid replacement
     Dosage: 1000 ML, SINGLE
     Route: 042
     Dates: start: 20220429, end: 20220429
  3. DEXTROSE [Concomitant]
     Active Substance: DEXTROSE
     Dosage: 500 ML, QD
     Route: 042
     Dates: start: 20220501, end: 20220509
  4. DEXTROSE [Concomitant]
     Active Substance: DEXTROSE
     Dosage: 500 ML, SINGLE
     Route: 042
     Dates: start: 20220616, end: 20220616
  5. DEXTROSE [Concomitant]
     Active Substance: DEXTROSE
     Dosage: 500 ML, QD
     Route: 042
     Dates: start: 20220616, end: 20220619
  6. SODIUM CHLORIDE [Concomitant]
     Active Substance: SODIUM CHLORIDE
     Indication: Fluid replacement
     Dosage: 500 ML, SINGLE
     Route: 042
     Dates: start: 20220429, end: 20220429
  7. SODIUM CHLORIDE [Concomitant]
     Active Substance: SODIUM CHLORIDE
     Dosage: 500 ML, QD
     Route: 042
     Dates: start: 20220501, end: 20220509
  8. PROMETHAZINE [Concomitant]
     Active Substance: PROMETHAZINE HYDROCHLORIDE
     Indication: Prophylaxis
     Dosage: 25 MG, SINGLE
     Route: 030
     Dates: start: 20220429, end: 20220429
  9. PROMETHAZINE [Concomitant]
     Active Substance: PROMETHAZINE HYDROCHLORIDE
     Dosage: 25 MG, SINGLE
     Route: 030
     Dates: start: 20220610, end: 20220610
  10. LORATADINE [Concomitant]
     Active Substance: LORATADINE
     Indication: Prophylaxis
     Dosage: 10 MG, SINGLE
     Route: 048
     Dates: start: 20220429, end: 20220429
  11. LORATADINE [Concomitant]
     Active Substance: LORATADINE
     Dosage: 10 MG, SINGLE
     Dates: start: 20220610, end: 20220610
  12. DEXAMETHASONE SODIUM PHOSPHATE [Concomitant]
     Active Substance: DEXAMETHASONE SODIUM PHOSPHATE
     Indication: Prophylaxis
     Dosage: 10 MG, SINGLE
     Route: 042
     Dates: start: 20220429, end: 20220429
  13. DEXAMETHASONE SODIUM PHOSPHATE [Concomitant]
     Active Substance: DEXAMETHASONE SODIUM PHOSPHATE
     Dosage: 10 MG, SINGLE
     Route: 042
     Dates: start: 20220610, end: 20220610
  14. PALONOSETRON HYDROCHLORIDE [Concomitant]
     Active Substance: PALONOSETRON HYDROCHLORIDE
     Indication: Prophylaxis
     Dosage: 0.25 MG, SINGLE
     Route: 042
     Dates: start: 20220429, end: 20220429
  15. PALONOSETRON HYDROCHLORIDE [Concomitant]
     Active Substance: PALONOSETRON HYDROCHLORIDE
     Dosage: 0.25 MG, SINGLE
     Route: 042
     Dates: start: 20220610, end: 20220610
  16. SODIUM BICARBONATE [Concomitant]
     Active Substance: SODIUM BICARBONATE
     Indication: Blood pH increased
     Dosage: 4 G, SINGLE
     Route: 042
     Dates: start: 20220429, end: 20220429
  17. SODIUM BICARBONATE [Concomitant]
     Active Substance: SODIUM BICARBONATE
     Dosage: 4 G, SINGLE
     Dates: start: 20220430, end: 20220430
  18. RECOMBINANT HUMAN GRANULOCYTE COLONY STIMULATING FACTOR INJECTION [Concomitant]
     Indication: White blood cell count increased
     Dosage: 200 UG, SINGLE
     Route: 058
     Dates: start: 20220501, end: 20220501
  19. RECOMBINANT HUMAN GRANULOCYTE COLONY STIMULATING FACTOR INJECTION [Concomitant]
     Dosage: 150 UG, SINGLE
     Route: 058
     Dates: start: 20220520, end: 20220520
  20. ENTECAVIR CAPSULES [Concomitant]
     Indication: Prophylaxis
     Dosage: 0.5 MG, QD
     Route: 048
     Dates: start: 202203
  21. BICYCLOL TABLETS [Concomitant]
     Indication: Prophylaxis
     Dosage: 25 MG, QD
     Route: 048
     Dates: start: 20220502, end: 20220507
  22. TRAMADOL HYDROCHLORIDE SUSTAINED RELEASE TABLETS [Concomitant]
     Indication: Pain
     Dosage: 0.1 G, SINGLE
     Route: 048
     Dates: start: 20220430, end: 20220430
  23. TRAMADOL HYDROCHLORIDE SUSTAINED RELEASE TABLETS [Concomitant]
     Dosage: 0.1 G,ONCE
     Route: 048
     Dates: start: 20220503, end: 20220503
  24. POTASSIUM CHLORIDE [Concomitant]
     Active Substance: POTASSIUM CHLORIDE
     Indication: Blood potassium
     Dosage: 3 G, SINGLE
     Route: 048
     Dates: start: 20220501, end: 20220501
  25. POTASSIUM CHLORIDE [Concomitant]
     Active Substance: POTASSIUM CHLORIDE
     Dosage: 3 G, QD
     Route: 048
     Dates: start: 20220509, end: 20220510
  26. POTASSIUM CHLORIDE [Concomitant]
     Active Substance: POTASSIUM CHLORIDE
     Dosage: 1.5 G,ONCE
     Route: 042
     Dates: start: 20220510, end: 20220510
  27. OMEPRAZOLE [Concomitant]
     Active Substance: OMEPRAZOLE
     Indication: Gastritis
     Dosage: 20 MG, U
     Route: 048
     Dates: start: 2022, end: 20220507
  28. SODIUM IBANDRONATE INJECTION [Concomitant]
     Indication: Prophylaxis
     Dosage: 4 MG, SINGLE
     Route: 042
     Dates: start: 20220430, end: 20220430
  29. FUROSEMIDE [Concomitant]
     Active Substance: FUROSEMIDE
     Indication: Diuretic therapy
     Dosage: 20 MG, SINGLE
     Route: 042
     Dates: start: 20220429, end: 20220429
  30. FUROSEMIDE [Concomitant]
     Active Substance: FUROSEMIDE
     Dosage: 20 MG, QD
     Route: 042
     Dates: start: 20220505, end: 20220505
  31. THYMALFASIN FOR INJECTION [Concomitant]
     Indication: Immune system disorder
     Dosage: 1.6 MG, SINGLE
     Route: 058
     Dates: start: 20220725, end: 20220725
  32. POTASSIUM CHLORIDE SUSTAINED-RELEASE TABLETS [Concomitant]
     Indication: Mineral supplementation
     Dosage: 0.5 G, TID
     Route: 048
     Dates: start: 20220812
  33. HEMOCOAGULASE FOR INJECTION [Concomitant]
     Indication: Haemostasis
     Dosage: 1000 U, QD
     Route: 030
     Dates: start: 20220822, end: 20220824
  34. NIFEDIPINE CONTROLLED RELEASE TABLETS [Concomitant]
     Indication: Hypertension
     Dosage: 30 MG,QD
     Route: 048
     Dates: start: 20220503, end: 20220503

REACTIONS (1)
  - Bone pain [Recovered/Resolved]

NARRATIVE: CASE EVENT DATE: 20220502
